FAERS Safety Report 5003088-2 (Version None)
Quarter: 2006Q2

REPORT INFORMATION
  Report Type: 
  Country: None (occurrence: None)
  Receive Date: 20060516
  Receipt Date: 20041126
  Transmission Date: 20061013
  Serious: Yes (Hospitalization, Disabling)
  Sender: FDA-Public Use
  Company Number: DE-MERCK-0412DEU00110

PATIENT
  Age: 37 Year
  Sex: Female

DRUGS (2)
  1. VIOXX [Suspect]
     Indication: BACK PAIN
     Route: 048
     Dates: start: 20011001, end: 20041001
  2. CELECOXIB [Concomitant]
     Indication: BACK PAIN
     Route: 048
     Dates: start: 20010901

REACTIONS (11)
  - ARTERIAL STENOSIS [None]
  - BLOOD PRESSURE INCREASED [None]
  - BRAIN STEM INFARCTION [None]
  - CEREBRAL ARTERY STENOSIS [None]
  - CEREBROVASCULAR DISORDER [None]
  - HYPERHIDROSIS [None]
  - HYPERLIPIDAEMIA [None]
  - LEUKOENCEPHALOPATHY [None]
  - SUBCLAVIAN ARTERY STENOSIS [None]
  - VASCULITIS [None]
  - VISUAL DISTURBANCE [None]
